FAERS Safety Report 5742884-0 (Version None)
Quarter: 2008Q2

REPORT INFORMATION
  Report Type: 
  Country: None (occurrence: None)
  Receive Date: 20080519
  Receipt Date: 20080507
  Transmission Date: 20081010
  Serious: Yes (Other)
  Sender: FDA-Public Use
  Company Number: PHBS1997AU06109

PATIENT
  Age: 72 Year
  Sex: Male

DRUGS (6)
  1. FAMVIR [Suspect]
     Route: 065
     Dates: end: 19970101
  2. AMITRIPTYLINE HCL [Concomitant]
     Dosage: 50 MG/DAY
     Route: 065
  3. FELODIPINE [Concomitant]
     Dosage: UNK, UNK
     Route: 065
  4. FLOXACILLIN SODIUM [Suspect]
     Dosage: UNK, UNK
     Route: 065
     Dates: end: 19970101
  5. LISINOPRIL [Concomitant]
     Dosage: 20 MG/DAY
     Route: 065
  6. TEGRETOL [Suspect]
     Dosage: 400 MG/ADY
     Route: 065
     Dates: start: 19970131, end: 19970214

REACTIONS (6)
  - FATIGUE [None]
  - HEPATIC FUNCTION ABNORMAL [None]
  - HYPERHIDROSIS [None]
  - JAUNDICE [None]
  - NIGHT SWEATS [None]
  - PYREXIA [None]
